FAERS Safety Report 20224407 (Version 1)
Quarter: 2021Q4

REPORT INFORMATION
  Report Type: Spontaneous
  Country: US (occurrence: None)
  Receive Date: 20211223
  Receipt Date: 20211223
  Transmission Date: 20220303
  Serious: No
  Sender: FDA-Public Use
  Company Number: None

PATIENT
  Age: 57 Year
  Sex: Female

DRUGS (2)
  1. REGEN-COV [Suspect]
     Active Substance: CASIRIVIMAB\IMDEVIMAB
     Indication: COVID-19 pneumonia
     Route: 058
     Dates: start: 20211222, end: 20211222
  2. benadryl 50mg [Concomitant]
     Dates: start: 20211222, end: 20211222

REACTIONS (4)
  - COVID-19 pneumonia [None]
  - Injection site erythema [None]
  - Injection site pruritus [None]
  - Injection site irritation [None]

NARRATIVE: CASE EVENT DATE: 20211222
